FAERS Safety Report 5232792-6 (Version None)
Quarter: 2007Q1

REPORT INFORMATION
  Report Type: 
  Country: None (occurrence: None)
  Receive Date: 20070207
  Receipt Date: 20070125
  Transmission Date: 20070707
  Serious: Yes (Hospitalization)
  Sender: FDA-Public Use
  Company Number: PHBS2006BE17233

PATIENT
  Age: 69 Year
  Sex: Male

DRUGS (5)
  1. GLEEVEC [Suspect]
     Indication: CHRONIC MYELOID LEUKAEMIA
     Dosage: 400 MG/DAY
     Dates: start: 20030101
  2. KREDEX [Concomitant]
  3. COVERSYL                                /BEL/ [Concomitant]
  4. ASAFLOW [Concomitant]
  5. FLUDEX [Concomitant]

REACTIONS (3)
  - FATIGUE [None]
  - MENINGORRHAGIA [None]
  - VOMITING [None]
